FAERS Safety Report 6476854-4 (Version None)
Quarter: 2009Q4

REPORT INFORMATION
  Report Type: 
  Country: None (occurrence: None)
  Receive Date: 20091203
  Receipt Date: 20091203
  Transmission Date: 20100525
  Serious: Yes (Hospitalization)
  Sender: FDA-Public Use
  Company Number: None

PATIENT
  Age: 20 Year
  Sex: Male
  Weight: 73.0291 kg

DRUGS (1)
  1. SUBOXONE [Suspect]
     Indication: DRUG DEPENDENCE
     Dosage: 1 DOS 3 TIMES DAILY EVERYDAY PO
     Route: 048
     Dates: start: 20081124, end: 20081222

REACTIONS (4)
  - CONVULSION [None]
  - ECONOMIC PROBLEM [None]
  - ROAD TRAFFIC ACCIDENT [None]
  - UNEMPLOYMENT [None]
